FAERS Safety Report 11866197 (Version 1)
Quarter: 2015Q4

REPORT INFORMATION
  Report Type: Spontaneous
  Country: CZ (occurrence: CZ)
  Receive Date: 20151223
  Receipt Date: 20151223
  Transmission Date: 20160305
  Serious: No
  Sender: FDA-Public Use
  Company Number: CZ-EXELIXIS-CABO-15005792

PATIENT
  Age: 55 Year
  Sex: Male

DRUGS (2)
  1. NSAIDS [Concomitant]
     Active Substance: UNSPECIFIED INGREDIENT
  2. COMETRIQ [Suspect]
     Active Substance: CABOZANTINIB S-MALATE
     Indication: THYROID CANCER METASTATIC
     Dosage: 140 MG, QD
     Route: 048
     Dates: start: 201502

REACTIONS (2)
  - Arthralgia [Recovered/Resolved]
  - Myalgia [Recovered/Resolved]

NARRATIVE: CASE EVENT DATE: 2015
